FAERS Safety Report 7995822-4 (Version None)
Quarter: 2011Q4

REPORT INFORMATION
  Report Type: 
  Country: None (occurrence: None)
  Receive Date: 20111220
  Receipt Date: 20111212
  Transmission Date: 20120403
  Serious: No
  Sender: FDA-Public Use
  Company Number: US-JNJFOC-20111205506

PATIENT
  Sex: Female
  Weight: 81.65 kg

DRUGS (10)
  1. AMITRIPTYLINE HCL [Concomitant]
     Indication: SLEEP DISORDER THERAPY
     Route: 048
     Dates: start: 19900101
  2. DURAGESIC-100 [Suspect]
     Indication: SURGERY
     Route: 062
  3. DURAGESIC-100 [Suspect]
     Indication: OSTEOARTHRITIS
     Route: 062
  4. OMEPRAZOLE [Concomitant]
     Indication: HIATUS HERNIA
  5. UNKNOWN MEDICATION [Concomitant]
     Indication: PANIC ATTACK
     Route: 048
     Dates: start: 19900101
  6. CARISOPRODOL [Concomitant]
     Indication: MUSCLE SPASMS
     Route: 048
  7. PRAVASTATIN [Concomitant]
     Indication: BLOOD CHOLESTEROL
     Route: 048
     Dates: start: 19900101
  8. LYRICA [Concomitant]
     Indication: FIBROMYALGIA
     Route: 048
     Dates: start: 19900101
  9. DURAGESIC-100 [Suspect]
     Indication: RHEUMATOID ARTHRITIS
     Route: 062
  10. TRIAMTERENE [Concomitant]
     Indication: FLUID RETENTION
     Route: 048
     Dates: start: 19900101

REACTIONS (4)
  - APPLICATION SITE RASH [None]
  - WRONG TECHNIQUE IN DRUG USAGE PROCESS [None]
  - DRUG ADMINISTERED AT INAPPROPRIATE SITE [None]
  - INADEQUATE ANALGESIA [None]
